FAERS Safety Report 16244084 (Version 2)
Quarter: 2019Q2

REPORT INFORMATION
  Report Type: Spontaneous
  Country: IN (occurrence: IN)
  Receive Date: 20190426
  Receipt Date: 20190501
  Transmission Date: 20190711
  Serious: Yes (Death, Other)
  Sender: FDA-Public Use
  Company Number: IN-PFIZER INC-2019176686

PATIENT
  Age: 35 Year
  Sex: Female

DRUGS (3)
  1. TRANEXAMIC ACID. [Suspect]
     Active Substance: TRANEXAMIC ACID
     Indication: ANALGESIC THERAPY
  2. TRANEXAMIC ACID. [Suspect]
     Active Substance: TRANEXAMIC ACID
     Indication: CHOLECYSTECTOMY
  3. TRANEXAMIC ACID. [Suspect]
     Active Substance: TRANEXAMIC ACID
     Indication: SPINAL ANAESTHESIA
     Dosage: 350 MG, UNK (LEVEL OF SPINAL INJECTION L2/3)
     Route: 037

REACTIONS (9)
  - Death [Fatal]
  - Cardiac arrest [Unknown]
  - Medication error [Unknown]
  - Seizure [Unknown]
  - Pain in extremity [Unknown]
  - Back pain [Unknown]
  - Myoclonic epilepsy [Unknown]
  - Restlessness [Unknown]
  - Ventricular extrasystoles [Unknown]
